FAERS Safety Report 8968595 (Version 1)
Quarter: 2012Q4

REPORT INFORMATION
  Report Type: Report from Study
  Country: FR (occurrence: FR)
  Receive Date: 20121217
  Receipt Date: 20121217
  Transmission Date: 20130627
  Serious: Yes (Other)
  Sender: FDA-Public Use
  Company Number: FR-ROCHE-736439

PATIENT
  Sex: Male

DRUGS (9)
  1. RITUXIMAB [Suspect]
     Indication: RHEUMATOID ARTHRITIS
     Dosage: SOLUTION TO DILUTE FOR DRIP
     Route: 042
     Dates: start: 20091014, end: 20101011
  2. CARBOSYMAG [Concomitant]
     Route: 065
  3. TD-POLIO [Concomitant]
     Route: 065
  4. PNEUMO 23 [Concomitant]
     Route: 065
  5. SOLU-MEDROL [Concomitant]
     Route: 065
  6. POLARAMINE [Concomitant]
     Route: 065
  7. METHOTREXATE [Concomitant]
     Route: 065
  8. OMIX [Concomitant]
     Route: 065
  9. CACIT D3 [Concomitant]
     Route: 065

REACTIONS (1)
  - Adenocarcinoma of colon [Not Recovered/Not Resolved]
